FAERS Safety Report 22350677 (Version 1)
Quarter: 2023Q2

REPORT INFORMATION
  Report Type: Spontaneous
  Country: US (occurrence: None)
  Receive Date: 20230521
  Receipt Date: 20230521
  Transmission Date: 20230722
  Serious: Yes (Other)
  Sender: FDA-Public Use
  Company Number: None

PATIENT
  Age: 23 Year
  Weight: 60.75 kg

DRUGS (1)
  1. CANNABIDIOL\HERBALS [Suspect]
     Active Substance: CANNABIDIOL\HERBALS
     Indication: Oral bacterial infection
     Dosage: FREQUENCY : TWICE A DAY;?OTHER ROUTE : BRUSHED TEETH (AND GOT ONTO GUMS);?
     Route: 050
     Dates: start: 20230515, end: 20230515

REACTIONS (4)
  - Gingival discomfort [None]
  - Gingival swelling [None]
  - Gingival pain [None]
  - Gingival bleeding [None]

NARRATIVE: CASE EVENT DATE: 20230515
